FAERS Safety Report 8683335 (Version 3)
Quarter: 2012Q4

REPORT INFORMATION
  Report Type: 
  Country: GB (occurrence: GB)
  Receive Date: 20120726
  Receipt Date: 20121023
  Transmission Date: 20130627
  Serious: Yes (Hospitalization, Other)
  Sender: FDA-Public Use
  Company Number: GB-009507513-1207GBR009077

PATIENT
  Age: 46 Year
  Sex: Female

DRUGS (11)
  1. ZOCOR [Suspect]
     Route: 048
  2. CLOZARIL [Suspect]
     Indication: SCHIZOPHRENIA
     Dosage: 40 DF, UNK
     Route: 048
     Dates: start: 20100428, end: 20120628
  3. CLOZARIL [Suspect]
     Dosage: 100 mg morning and 225 mg night
     Route: 048
  4. FOLIC ACID [Suspect]
     Route: 048
  5. VALPROIC ACID [Suspect]
  6. DEPAKOTE [Concomitant]
     Dosage: 1000 mg, UNK
     Route: 048
  7. DEPAKOTE [Concomitant]
     Dosage: 500 mg, UNK
     Route: 048
  8. SCOPOLAMINE HYDROBROMIDE [Concomitant]
     Dosage: 300 mg, bid
     Route: 048
  9. SIMVASTATIN [Concomitant]
     Dosage: 30 mg, UNK
     Route: 048
  10. SIMVASTATIN [Concomitant]
     Dosage: UNK
  11. SYMBICORT [Concomitant]
     Dosage: 2 DF, bid

REACTIONS (7)
  - Suicidal behaviour [Recovered/Resolved]
  - Overdose [Recovered/Resolved]
  - Pneumonia [Unknown]
  - Blood creatine phosphokinase increased [Unknown]
  - Neutrophil count increased [Unknown]
  - Blood urea decreased [Unknown]
  - White blood cell count increased [Unknown]
